FAERS Safety Report 14663111 (Version 1)
Quarter: 2018Q1

REPORT INFORMATION
  Report Type: Spontaneous
  Country: JP (occurrence: JP)
  Receive Date: 20180321
  Receipt Date: 20180321
  Transmission Date: 20180509
  Serious: Yes (Life-Threatening, Other)
  Sender: FDA-Public Use
  Company Number: JP-GLENMARK PHARMACEUTICALS-2018GMK033370

PATIENT
  Age: 63 Year
  Sex: Male

DRUGS (2)
  1. GLYCERINE [Suspect]
     Active Substance: GLYCERIN
     Indication: DURAL ARTERIOVENOUS FISTULA
     Dosage: 400 ML, UNK
     Route: 065
  2. BETAMETHASONE DIPROPIONATE. [Suspect]
     Active Substance: BETAMETHASONE DIPROPIONATE
     Indication: DURAL ARTERIOVENOUS FISTULA
     Dosage: 4 MG, UNK
     Route: 042

REACTIONS (3)
  - Quadriplegia [Recovered/Resolved with Sequelae]
  - Respiratory failure [Recovered/Resolved]
  - Condition aggravated [Recovered/Resolved with Sequelae]
